FAERS Safety Report 11177620 (Version 6)
Quarter: 2019Q1

REPORT INFORMATION
  Report Type: Spontaneous
  Country: US (occurrence: US)
  Receive Date: 20150610
  Receipt Date: 20190319
  Transmission Date: 20190417
  Serious: No
  Sender: FDA-Public Use
  Company Number: US-PFIZER INC-2015191884

PATIENT
  Age: 72 Year
  Sex: Male

DRUGS (2)
  1. QUINAPRIL. [Suspect]
     Active Substance: QUINAPRIL
     Indication: HYPERTENSION
     Dosage: 1 DF, 1X/DAY
     Dates: start: 2014
  2. ACCUPRIL [Suspect]
     Active Substance: QUINAPRIL HYDROCHLORIDE
     Indication: HYPERTENSION
     Dosage: 40 MG, 1X/DAY
     Route: 048

REACTIONS (6)
  - Nausea [Recovering/Resolving]
  - Suspected counterfeit product [Unknown]
  - Dyspepsia [Recovering/Resolving]
  - Musculoskeletal pain [Recovering/Resolving]
  - Dizziness [Unknown]
  - Malaise [Unknown]
